FAERS Safety Report 21833640 (Version 1)
Quarter: 2023Q1

REPORT INFORMATION
  Report Type: Spontaneous
  Country: FR (occurrence: FR)
  Receive Date: 20230107
  Receipt Date: 20230107
  Transmission Date: 20230417
  Serious: Yes (Hospitalization, Other)
  Sender: FDA-Public Use
  Company Number: FR-AFSSAPS-GR20222662

PATIENT
  Age: 77 Year
  Sex: Male

DRUGS (3)
  1. CIPROFLOXACIN [Interacting]
     Active Substance: CIPROFLOXACIN
     Indication: Urinary tract infection
     Dosage: 500 MILLIGRAM
     Route: 048
     Dates: start: 20221011, end: 20221125
  2. XTANDI [Interacting]
     Active Substance: ENZALUTAMIDE
     Indication: Prostate cancer
     Dosage: 160 MILLIGRAM, ONCE A DAY
     Route: 048
     Dates: start: 20220726, end: 20221125
  3. Decapeptyl [Concomitant]
     Indication: Prostate cancer
     Dosage: NP
     Route: 048
     Dates: start: 20220726

REACTIONS (2)
  - Seizure [Recovered/Resolved]
  - Drug interaction [Recovered/Resolved]

NARRATIVE: CASE EVENT DATE: 20221125
